FAERS Safety Report 5136285-6 (Version None)
Quarter: 2006Q4

REPORT INFORMATION
  Report Type: 
  Country: None (occurrence: None)
  Receive Date: 20061027
  Receipt Date: 20061017
  Transmission Date: 20070319
  Serious: Yes (Other)
  Sender: FDA-Public Use
  Company Number: US-GLAXOSMITHKLINE-A0623904A

PATIENT
  Age: 77 Year
  Sex: Female

DRUGS (3)
  1. LAMICTAL [Suspect]
     Indication: BIPOLAR DISORDER
     Route: 048
     Dates: start: 20060523
  2. ZOLOFT [Concomitant]
  3. PROLIXIN [Concomitant]
     Dosage: 1MG PER DAY

REACTIONS (4)
  - DRY MOUTH [None]
  - PNEUMONIA [None]
  - SPEECH DISORDER [None]
  - TONGUE DISORDER [None]
